FAERS Safety Report 5025450-4 (Version None)
Quarter: 2006Q2

REPORT INFORMATION
  Report Type: 
  Country: None (occurrence: None)
  Receive Date: 20060608
  Receipt Date: 20060531
  Transmission Date: 20061013
  Serious: Yes (Other)
  Sender: FDA-Public Use
  Company Number: 2005166247

PATIENT
  Age: 47 Year
  Sex: Male

DRUGS (3)
  1. VIAGRA [Suspect]
     Indication: ILL-DEFINED DISORDER
     Dates: start: 20050101
  2. VALIUM [Concomitant]
  3. TYLENOL W/ CODEINE [Concomitant]

REACTIONS (8)
  - CHRONIC OBSTRUCTIVE PULMONARY DISEASE [None]
  - CLOSED HEAD INJURY [None]
  - DRUG INEFFECTIVE [None]
  - EMOTIONAL DISORDER [None]
  - ERECTILE DYSFUNCTION [None]
  - GUN SHOT WOUND [None]
  - JOINT INJURY [None]
  - SELF-MEDICATION [None]
